FAERS Safety Report 4548364-2 (Version None)
Quarter: 2004Q4

REPORT INFORMATION
  Report Type: 
  Country: None (occurrence: None)
  Receive Date: 20041220
  Receipt Date: 20041018
  Transmission Date: 20050328
  Serious: Yes (Hospitalization, Other)
  Sender: FDA-Public Use
  Company Number: US_0402101053

PATIENT
  Age: 50 Year
  Sex: Male
  Weight: 122 kg

DRUGS (7)
  1. HUMULIN N [Suspect]
     Indication: DIABETES MELLITUS
     Dates: start: 19880101, end: 19920101
  2. HUMULIN R [Suspect]
     Indication: DIABETES MELLITUS
     Dates: start: 19880101, end: 19920101
  3. HUMULIN 70/30 [Suspect]
     Indication: DIABETES MELLITUS
     Dates: start: 19920101
  4. HUMALOG [Suspect]
     Indication: DIABETES MELLITUS
     Dosage: 75 U DAY
  5. COUMADIN [Concomitant]
  6. CLOPIDOGREL [Concomitant]
  7. METFORMIN HCL [Concomitant]

REACTIONS (14)
  - ARTHRALGIA [None]
  - BLOOD GLUCOSE INCREASED [None]
  - EYE DISORDER [None]
  - EYE HAEMORRHAGE [None]
  - FALL [None]
  - GALLBLADDER OPERATION [None]
  - INFECTION [None]
  - MACULAR DEGENERATION [None]
  - PYREXIA [None]
  - RETINOPATHY [None]
  - SURGERY [None]
  - TRIPLE VESSEL BYPASS GRAFT [None]
  - UPPER LIMB FRACTURE [None]
  - VISUAL ACUITY REDUCED [None]
